FAERS Safety Report 4745489-3 (Version None)
Quarter: 2005Q3

REPORT INFORMATION
  Report Type: 
  Country: None (occurrence: None)
  Receive Date: 20050812
  Receipt Date: 20050801
  Transmission Date: 20060218
  Serious: Yes (Death)
  Sender: FDA-Public Use
  Company Number: 05USA0161

PATIENT
  Age: 62 Year
  Sex: Male

DRUGS (3)
  1. AGGRASTAT [Suspect]
     Indication: CORONARY ANGIOPLASTY
     Route: 042
  2. AGGRASTAT [Suspect]
     Indication: DRUG USE FOR UNKNOWN INDICATION
     Route: 042
  3. HEPARIN [Concomitant]

REACTIONS (1)
  - DEATH [None]
